FAERS Safety Report 9378900 (Version 4)
Quarter: 2013Q3

REPORT INFORMATION
  Report Type: Spontaneous
  Country: US (occurrence: US)
  Receive Date: 20130702
  Receipt Date: 20130807
  Transmission Date: 20140515
  Serious: No
  Sender: FDA-Public Use
  Company Number: US-PFIZER INC-2013194267

PATIENT
  Age: 69 Year
  Sex: Male

DRUGS (14)
  1. XELJANZ [Suspect]
     Indication: RHEUMATOID ARTHRITIS
     Dosage: 5 MG, 1X/DAY
     Route: 048
     Dates: start: 20130601, end: 201307
  2. AMARYL [Concomitant]
     Dosage: 2 MG, 3X/DAY
     Route: 048
  3. CO-Q-10 [Concomitant]
     Dosage: 10 MG, 1X/DAY
     Route: 048
  4. DEPO-MEDROL [Concomitant]
     Dosage: 80 MG, EVERY 4 WEEKS
     Route: 030
  5. LANTUS [Concomitant]
     Dosage: 50 TO 60 UNITS A DAY
     Route: 058
  6. LASIX [Concomitant]
     Dosage: 20 MG, 1X/DAY AS NEEDED
     Route: 048
  7. LISINOPRIL [Concomitant]
     Dosage: 40 MG, 1X/DAY
     Route: 048
  8. MARINOL [Concomitant]
     Dosage: 2.5 MG, 2X/DAY AS NEEDED
     Route: 048
  9. NOVOLOG [Concomitant]
     Dosage: 100 UNIT/ML
     Route: 058
  10. PLAQUENIL [Concomitant]
     Dosage: 200 MG, 2X/DAY
     Route: 048
  11. PREDNISONE [Concomitant]
     Dosage: 1 MG, 1X/DAY, AS NEEDED
     Route: 048
  12. PROTONIX [Concomitant]
     Dosage: 40 MG, 1X/DAY
     Route: 048
  13. VITAMIN D3 [Concomitant]
     Dosage: 2000 IU, 1X/DAY
     Route: 048
  14. LEXAPRO [Concomitant]
     Dosage: 10 MG, 2X/DAY
     Route: 048

REACTIONS (2)
  - Vision blurred [Recovered/Resolved]
  - Photophobia [Recovered/Resolved]
